FAERS Safety Report 14471810 (Version 3)
Quarter: 2018Q4

REPORT INFORMATION
  Report Type: Spontaneous
  Country: US (occurrence: US)
  Receive Date: 20180131
  Receipt Date: 20181120
  Transmission Date: 20190204
  Serious: Yes (Other)
  Sender: FDA-Public Use
  Company Number: US-DSJP-DSU-2017-146019

PATIENT

DRUGS (1)
  1. BENICAR [Suspect]
     Active Substance: OLMESARTAN MEDOXOMIL
     Indication: HYPERTENSION
     Dosage: 40 MG, QD
     Route: 048
     Dates: start: 20090601

REACTIONS (6)
  - Polyp [Unknown]
  - Weight decreased [Unknown]
  - Diverticulum [Unknown]
  - Haemorrhoids [Unknown]
  - Rectal ulcer [Unknown]
  - Anal fistula [Unknown]

NARRATIVE: CASE EVENT DATE: 2010
